FAERS Safety Report 16648195 (Version 1)
Quarter: 2019Q3

REPORT INFORMATION
  Report Type: Spontaneous
  Country: JP (occurrence: JP)
  Receive Date: 20190730
  Receipt Date: 20190730
  Transmission Date: 20191004
  Serious: Yes (Other)
  Sender: FDA-Public Use
  Company Number: JP-ASTRAZENECA-2019SF08102

PATIENT
  Age: 83 Year
  Sex: Male

DRUGS (5)
  1. TAGRISSO [Suspect]
     Active Substance: OSIMERTINIB
     Indication: NON-SMALL CELL LUNG CANCER
     Route: 048
     Dates: start: 20190627, end: 20190709
  2. HERBAL NOS [Suspect]
     Active Substance: HERBALS
     Dosage: DOSE UNKNOWN
     Route: 048
  3. ELIQUIS [Concomitant]
     Active Substance: APIXABAN
     Dosage: DOSE UNKNOWN
     Route: 065
  4. NORVASC [Suspect]
     Active Substance: AMLODIPINE BESYLATE
     Route: 048
  5. LIXIANA [Suspect]
     Active Substance: EDOXABAN TOSYLATE
     Route: 048

REACTIONS (2)
  - Erythema multiforme [Recovered/Resolved]
  - Renal impairment [Recovered/Resolved]

NARRATIVE: CASE EVENT DATE: 20190709
